FAERS Safety Report 4580719-2 (Version None)
Quarter: 2005Q1

REPORT INFORMATION
  Report Type: 
  Country: None (occurrence: None)
  Receive Date: 20050214
  Receipt Date: 20040518
  Transmission Date: 20050727
  Serious: No
  Sender: FDA-Public Use
  Company Number: US-GLAXOSMITHKLINE-A0511279A

PATIENT
  Age: 61 Year
  Sex: Female

DRUGS (2)
  1. LAMICTAL [Suspect]
     Indication: BIPOLAR DISORDER
     Dosage: 50MG PER DAY
     Route: 048
     Dates: start: 19970101, end: 20040508
  2. THYROID TAB [Concomitant]

REACTIONS (4)
  - CHAPPED LIPS [None]
  - CHEILITIS [None]
  - NASAL OEDEMA [None]
  - SWELLING FACE [None]
